FAERS Safety Report 9282784 (Version 2)
Quarter: 2013Q2

REPORT INFORMATION
  Report Type: Spontaneous
  Country: DE (occurrence: DE)
  Receive Date: 20130510
  Receipt Date: 20130603
  Transmission Date: 20140414
  Serious: Yes (Hospitalization, Other)
  Sender: FDA-Public Use
  Company Number: DE-BRISTOL-MYERS SQUIBB COMPANY-18851576

PATIENT
  Age: 1 Day
  Sex: Male
  Weight: 2.21 kg

DRUGS (2)
  1. ABILIFY [Suspect]
     Route: 064
     Dates: start: 20110717, end: 20120327
  2. FOLIC ACID [Suspect]
     Indication: PROPHYLAXIS OF NEURAL TUBE DEFECT
     Route: 064
     Dates: start: 20110824, end: 20120326

REACTIONS (2)
  - Premature baby [Recovered/Resolved]
  - Hypoglycaemia neonatal [Recovered/Resolved]
